FAERS Safety Report 11339843 (Version 2)
Quarter: 2015Q3

REPORT INFORMATION
  Report Type: Spontaneous
  Country: US (occurrence: US)
  Receive Date: 20150805
  Receipt Date: 20150806
  Transmission Date: 20151125
  Serious: Yes (Hospitalization)
  Sender: FDA-Public Use
  Company Number: US-ROCHE-1617819

PATIENT
  Age: 64 Year
  Sex: Male
  Weight: 98.5 kg

DRUGS (4)
  1. MIRCERA [Suspect]
     Active Substance: METHOXY POLYETHYLENE GLYCOL-EPOETIN BETA
     Indication: NEPHROGENIC ANAEMIA
     Dosage: RECEIVED MOST RECENT DOSE (3RD DOSE) ON 15/JUL/2015.
     Route: 042
     Dates: start: 20150617, end: 20150715
  2. VENOFER (UNITED STATES) [Concomitant]
     Indication: IRON DEFICIENCY
     Route: 042
     Dates: start: 20150713
  3. MIRCERA [Suspect]
     Active Substance: METHOXY POLYETHYLENE GLYCOL-EPOETIN BETA
     Route: 042
     Dates: start: 20150715, end: 20150728
  4. HECTOROL [Concomitant]
     Active Substance: DOXERCALCIFEROL
     Indication: VITAMIN D DEFICIENCY
     Route: 042
     Dates: start: 20150715

REACTIONS (3)
  - Gait disturbance [Unknown]
  - Pain in extremity [Unknown]
  - Papule [Recovering/Resolving]

NARRATIVE: CASE EVENT DATE: 20150720
